FAERS Safety Report 5929213-4 (Version None)
Quarter: 2008Q4

REPORT INFORMATION
  Report Type: 
  Country: None (occurrence: None)
  Receive Date: 20081023
  Receipt Date: 20081023
  Transmission Date: 20090506
  Serious: Yes (Other)
  Sender: FDA-Public Use
  Company Number: None

PATIENT
  Age: 6 Year
  Sex: Female
  Weight: 15.8759 kg

DRUGS (3)
  1. CIPRO HC [Suspect]
     Indication: EAR INFECTION
     Dosage: 3 DROPS 2 TIMES PER DAY OTIC
     Route: 001
     Dates: start: 20081019, end: 20081022
  2. ALBUTEROL [Concomitant]
  3. STERILE SALINE SOLUTION [Concomitant]

REACTIONS (1)
  - DRUG HYPERSENSITIVITY [None]
